FAERS Safety Report 15955789 (Version 1)
Quarter: 2019Q1

REPORT INFORMATION
  Report Type: Spontaneous
  Country: US (occurrence: DE)
  Receive Date: 20190213
  Receipt Date: 20190213
  Transmission Date: 20190417
  Serious: Yes (Hospitalization)
  Sender: FDA-Public Use
  Company Number: US-ALKEM LABORATORIES LIMITED-DE-ALKEM-2017-01752

PATIENT
  Age: 21 Year
  Sex: Female

DRUGS (7)
  1. KETOPROFEN. [Concomitant]
     Active Substance: KETOPROFEN
     Indication: SUICIDE ATTEMPT
     Dosage: UNK
  2. GABAPENTIN. [Suspect]
     Active Substance: GABAPENTIN
     Indication: SUICIDE ATTEMPT
     Dosage: 16 G, UNK
     Route: 065
  3. NICOTINIC ACID [Concomitant]
     Active Substance: NIACIN
     Indication: SUICIDE ATTEMPT
  4. TORSEMIDE. [Concomitant]
     Active Substance: TORSEMIDE
     Indication: SUICIDE ATTEMPT
  5. CARVEDILOL. [Concomitant]
     Active Substance: CARVEDILOL
     Indication: SUICIDE ATTEMPT
  6. AMLODIPINE [Concomitant]
     Active Substance: AMLODIPINE BESYLATE
     Indication: SUICIDE ATTEMPT
  7. AMITRIPTYLINE [Concomitant]
     Active Substance: AMITRIPTYLINE
     Indication: SUICIDE ATTEMPT

REACTIONS (1)
  - Overdose [Recovered/Resolved]
